FAERS Safety Report 18088123 (Version 1)
Quarter: 2020Q3

REPORT INFORMATION
  Report Type: Spontaneous
  Country: IT (occurrence: IT)
  Receive Date: 20200729
  Receipt Date: 20200729
  Transmission Date: 20201103
  Serious: Yes (Hospitalization)
  Sender: FDA-Public Use
  Company Number: IT-CMP PHARMA-2020CMP00019

PATIENT
  Age: 74 Year
  Sex: Male

DRUGS (2)
  1. ACE?INHIBITORS [Concomitant]
     Active Substance: UNSPECIFIED INGREDIENT
     Indication: HYPERTENSION
     Route: 065
  2. ISONIAZID. [Suspect]
     Active Substance: ISONIAZID
     Indication: LATENT TUBERCULOSIS
     Dosage: 5 MG/KG
     Route: 065

REACTIONS (1)
  - Acute kidney injury [Recovered/Resolved]
